FAERS Safety Report 6106840-5 (Version None)
Quarter: 2009Q1

REPORT INFORMATION
  Report Type: 
  Country: None (occurrence: None)
  Receive Date: 20090303
  Receipt Date: 20090217
  Transmission Date: 20090719
  Serious: Yes (Other)
  Sender: FDA-Public Use
  Company Number: GXKR2009IL02046

PATIENT
  Age: 5 Year
  Sex: Male

DRUGS (4)
  1. ACETAMINOPHEN [Suspect]
  2. METAMIZOLE (MGX) (METAMIZOLE) UNKNOWN [Suspect]
  3. IBUPROFEN [Suspect]
  4. HISTAFED (PSEUDOEPHEDRINE HYDROCHLORIDE, TRIPROLIDINE HYDROCHLORIDE) [Suspect]

REACTIONS (1)
  - TOXIC EPIDERMAL NECROLYSIS [None]
